FAERS Safety Report 5216618-2 (Version None)
Quarter: 2007Q1

REPORT INFORMATION
  Report Type: 
  Country: None (occurrence: None)
  Receive Date: 20061130
  Receipt Date: 20060807
  Transmission Date: 20070707
  Serious: Yes (Other)
  Sender: FDA-Public Use
  Company Number: US200608002148

PATIENT
  Age: 30 Year
  Sex: Female
  Weight: 550.6 kg

DRUGS (1)
  1. ZYPREXA [Suspect]
     Indication: ANXIETY
     Dosage: 10 MG, DAILY (1/D); ORAL; 20 MG, DAILY (1/D) ORAL
     Route: 048

REACTIONS (2)
  - DIABETES MELLITUS [None]
  - WEIGHT INCREASED [None]
